FAERS Safety Report 15376605 (Version 1)
Quarter: 2018Q3

REPORT INFORMATION
  Report Type: Spontaneous
  Country: US (occurrence: US)
  Receive Date: 20180912
  Receipt Date: 20180912
  Transmission Date: 20181010
  Serious: Yes (Other)
  Sender: FDA-Public Use
  Company Number: US-ASTRAZENECA-2018SF15822

PATIENT
  Sex: Male
  Weight: 86.2 kg

DRUGS (10)
  1. GLIMEPIRIDE. [Concomitant]
     Active Substance: GLIMEPIRIDE
     Indication: DIABETES MELLITUS
     Route: 048
  2. SYMBICORT [Suspect]
     Active Substance: BUDESONIDE\FORMOTEROL FUMARATE DIHYDRATE
     Dosage: 80/4.5, 2 PUFFS TWICE A DAY
     Route: 055
     Dates: start: 2018
  3. ASPIRIN. [Concomitant]
     Active Substance: ASPIRIN
     Indication: CARDIAC DISORDER
     Route: 048
     Dates: start: 1997
  4. JANUVIA [Concomitant]
     Active Substance: SITAGLIPTIN PHOSPHATE
     Indication: DIABETES MELLITUS
     Route: 048
  5. LOSARTAN. [Concomitant]
     Active Substance: LOSARTAN
     Indication: BLOOD PRESSURE ABNORMAL
     Route: 048
  6. VITAMIN D3 AND CALCIUM [Concomitant]
     Indication: BONE DISORDER
     Dosage: DAILY
     Route: 048
  7. METOPROLOL. [Suspect]
     Active Substance: METOPROLOL
     Indication: BLOOD PRESSURE ABNORMAL
     Route: 048
  8. DOXAZOSIN [Concomitant]
     Active Substance: DOXAZOSIN\DOXAZOSIN MESYLATE
     Route: 048
  9. CLOPIDOGREL [Concomitant]
     Active Substance: CLOPIDOGREL BISULFATE
     Indication: CARDIAC DISORDER
     Route: 048
     Dates: start: 1997
  10. ATORVASTATIN [Concomitant]
     Active Substance: ATORVASTATIN
     Indication: BLOOD CHOLESTEROL ABNORMAL
     Route: 048

REACTIONS (14)
  - Device malfunction [Unknown]
  - Weight decreased [Unknown]
  - Intentional product misuse [Unknown]
  - Off label use [Unknown]
  - Drug dose omission [Unknown]
  - Wrong technique in device usage process [Unknown]
  - Intervertebral disc disorder [Unknown]
  - Middle ear effusion [Unknown]
  - Peroneal nerve palsy postoperative [Unknown]
  - Product storage error [Unknown]
  - Ear disorder [Unknown]
  - Cough [Recovering/Resolving]
  - Device use issue [Unknown]
  - Product use issue [Unknown]
